FAERS Safety Report 5802454-2 (Version None)
Quarter: 2008Q3

REPORT INFORMATION
  Report Type: 
  Country: None (occurrence: None)
  Receive Date: 20080708
  Receipt Date: 19951227
  Transmission Date: 20090109
  Serious: Yes (Hospitalization)
  Sender: FDA-Public Use
  Company Number: JP-BAYER-1199511753

PATIENT
  Age: 59 Year
  Sex: Male
  Weight: 73 kg

DRUGS (7)
  1. GLUCOBAY [Suspect]
     Indication: TYPE 2 DIABETES MELLITUS
     Route: 048
     Dates: start: 19950801, end: 19951019
  2. GLIBENCLAMIDE [Concomitant]
     Route: 048
     Dates: start: 19910401, end: 19940401
  3. GLIBENCLAMIDE [Concomitant]
     Route: 048
     Dates: start: 19950904, end: 19951019
  4. GLIBENCLAMIDE [Concomitant]
     Route: 048
     Dates: start: 19940419, end: 19950903
  5. GLICLAZIDE [Concomitant]
     Route: 048
     Dates: start: 19940614, end: 19950309
  6. DILTIAZEM HCL [Concomitant]
     Route: 048
     Dates: start: 19940810, end: 19951019
  7. DIAZEPAM [Concomitant]
     Route: 048
     Dates: start: 19940916, end: 19951019

REACTIONS (1)
  - GASTRIC CANCER [None]
